FAERS Safety Report 6075372-5 (Version None)
Quarter: 2009Q1

REPORT INFORMATION
  Report Type: 
  Country: None (occurrence: None)
  Receive Date: 20090212
  Receipt Date: 20090203
  Transmission Date: 20090719
  Serious: Yes (Other)
  Sender: FDA-Public Use
  Company Number: US-AVENTIS-200818597US

PATIENT
  Age: 63 Year
  Sex: Female

DRUGS (3)
  1. LANTUS [Suspect]
     Dosage: DOSE: UNK
     Route: 058
  2. LANTUS [Suspect]
     Dosage: DOSE: UNK
     Route: 058
  3. OPTICLIK (INSULIN INJECTION PEN) [Suspect]

REACTIONS (3)
  - BLOOD GLUCOSE INCREASED [None]
  - CATARACT [None]
  - GLYCOSYLATED HAEMOGLOBIN INCREASED [None]
